FAERS Safety Report 4750243-2 (Version None)
Quarter: 2005Q3

REPORT INFORMATION
  Report Type: 
  Country: None (occurrence: None)
  Receive Date: 20050818
  Receipt Date: 20050809
  Transmission Date: 20060218
  Serious: No
  Sender: FDA-Public Use
  Company Number: US-2004-033615

PATIENT
  Age: 54 Year
  Sex: Female

DRUGS (9)
  1. BETASERON [Suspect]
     Indication: MULTIPLE SCLEROSIS
     Dosage: 8 MIU, EVERY 2D, SUBCUTANEOUS
     Route: 058
     Dates: start: 20040511
  2. DIOVAN HCT (VALSARTAN) [Concomitant]
  3. BAYER WOMEN'S FORMULA WITH CALCIUM [Concomitant]
  4. LEXAPRO [Concomitant]
  5. CENTRUM (VITAMINS NOS, MINERALS NOS) [Concomitant]
  6. STOOL SOFTENER (DOCUSATE SODIUM) [Concomitant]
  7. LAXATIVES [Concomitant]
  8. PEPCID AC [Concomitant]
  9. EXTRA STRENGTH TYLENOL [Concomitant]

REACTIONS (2)
  - HEADACHE [None]
  - MENINGEAL DISORDER [None]
